FAERS Safety Report 5017191-4 (Version None)
Quarter: 2006Q2

REPORT INFORMATION
  Report Type: 
  Country: None (occurrence: None)
  Receive Date: 20060602
  Receipt Date: 20060524
  Transmission Date: 20061013
  Serious: Yes (Hospitalization)
  Sender: FDA-Public Use
  Company Number: ZA-ABBOTT-06P-143-0334265-00

PATIENT
  Sex: Female

DRUGS (4)
  1. EPILIM SYRUP [Suspect]
     Indication: EPILEPSY
     Route: 048
     Dates: start: 19970801, end: 20060508
  2. EPILIM SYRUP [Suspect]
     Route: 048
     Dates: start: 20060509
  3. LAMOTRIGINE [Concomitant]
     Indication: EPILEPSY
     Route: 048
     Dates: start: 20030203
  4. UNSPECIFED MEDICATION [Concomitant]
     Indication: DRUG USE FOR UNKNOWN INDICATION
     Dates: start: 20060508, end: 20060508

REACTIONS (6)
  - BREAST SWELLING [None]
  - CYSTITIS [None]
  - DRUG LEVEL INCREASED [None]
  - GASTROINTESTINAL INFECTION [None]
  - LOSS OF CONSCIOUSNESS [None]
  - VAGINAL DISCHARGE [None]
